FAERS Safety Report 4951647-5 (Version None)
Quarter: 2006Q1

REPORT INFORMATION
  Report Type: 
  Country: None (occurrence: None)
  Receive Date: 20060322
  Receipt Date: 20060322
  Transmission Date: 20060701
  Serious: Yes (Hospitalization)
  Sender: FDA-Public Use
  Company Number: None

PATIENT
  Age: 79 Year
  Sex: Male
  Weight: 2.1 kg

DRUGS (3)
  1. TERAZOSIN HCL [Suspect]
     Indication: HYPERTENSION
     Dosage: 5 MG HS PO [YEARS]
     Route: 048
  2. METOPROLOL [Suspect]
     Indication: CORONARY ARTERY DISEASE
     Dosage: 100 MG BID PO [YEARS]
     Route: 048
  3. METOPROLOL [Suspect]
     Indication: HYPERTENSION
     Dosage: 100 MG BID PO [YEARS]
     Route: 048

REACTIONS (6)
  - ANAEMIA [None]
  - BRADYCARDIA [None]
  - CAROTID ARTERY STENOSIS [None]
  - CERUMEN IMPACTION [None]
  - DIZZINESS [None]
  - ORTHOSTATIC HYPOTENSION [None]
